FAERS Safety Report 7021462-X (Version None)
Quarter: 2010Q3

REPORT INFORMATION
  Report Type: 
  Country: None (occurrence: None)
  Receive Date: 20100929
  Receipt Date: 20100927
  Transmission Date: 20110219
  Serious: Yes (Hospitalization, Other)
  Sender: FDA-Public Use
  Company Number: US-ELI_LILLY_AND_COMPANY-US200910000129

PATIENT
  Sex: Female
  Weight: 57.596 kg

DRUGS (12)
  1. BYETTA [Suspect]
     Indication: TYPE 2 DIABETES MELLITUS
     Dosage: 10 UG, UNKNOWN
     Route: 065
     Dates: start: 20070703
  2. LANTUS [Concomitant]
     Indication: TYPE 2 DIABETES MELLITUS
     Dosage: 55 U, EACH EVENING
  3. LANTUS [Concomitant]
     Dosage: 25 U, EACH EVENING
     Route: 058
  4. LANTUS [Concomitant]
     Dosage: 48 U, EACH EVENING
  5. COREG [Concomitant]
     Indication: HYPERTENSION
     Dosage: 25 MG, 2/D
     Route: 048
  6. DIGOXIN [Concomitant]
     Indication: CARDIOMYOPATHY
     Dosage: 0.25 MG, DAILY (1/D)
     Route: 048
  7. ENALAPRIL MALEATE [Concomitant]
     Dosage: 10 MG, 2/D
     Route: 048
  8. TRICOR [Concomitant]
     Indication: HYPERTRIGLYCERIDAEMIA
     Dosage: 145 MG, DAILY (1/D)
     Route: 048
  9. CRESTOR [Concomitant]
     Indication: HYPERCHOLESTEROLAEMIA
     Dosage: 10 MG, DAILY (1/D)
     Route: 048
  10. SYNTHROID [Concomitant]
     Indication: HYPOTHYROIDISM
     Dosage: 88 UG, DAILY (1/D)
     Route: 048
  11. METFORMIN [Concomitant]
     Dosage: 850 MG, 3/D
  12. NEXIUM [Concomitant]

REACTIONS (4)
  - DEHYDRATION [None]
  - OFF LABEL USE [None]
  - PANCREATITIS ACUTE [None]
  - RENAL FAILURE ACUTE [None]
